FAERS Safety Report 7649684-5 (Version None)
Quarter: 2011Q3

REPORT INFORMATION
  Report Type: 
  Country: None (occurrence: None)
  Receive Date: 20110802
  Receipt Date: 20110729
  Transmission Date: 20111222
  Serious: No
  Sender: FDA-Public Use
  Company Number: US-PFIZER INC-2011173659

PATIENT
  Sex: Male

DRUGS (1)
  1. PEDIATRIC ADVIL [Suspect]
     Dosage: UNK
     Route: 048
     Dates: start: 20110727

REACTIONS (2)
  - GLOSSODYNIA [None]
  - THROAT IRRITATION [None]
